FAERS Safety Report 18152024 (Version 3)
Quarter: 2020Q3

REPORT INFORMATION
  Report Type: Spontaneous
  Country: US (occurrence: US)
  Receive Date: 20200814
  Receipt Date: 20200917
  Transmission Date: 20201103
  Serious: Yes (Other)
  Sender: FDA-Public Use
  Company Number: US-GW PHARMA-202008USGW02768

PATIENT

DRUGS (7)
  1. EPIDIOLEX [Suspect]
     Active Substance: CANNABIDIOL
     Indication: PRODUCT USED FOR UNKNOWN INDICATION
     Dosage: 16.58 MG/KG/DAY, 225 MILLIGRAM, BID (PRESCRIPTION DATE: 19 DEC 2019)
     Route: 048
     Dates: start: 202004, end: 2020
  2. EPIDIOLEX [Suspect]
     Active Substance: CANNABIDIOL
     Dosage: UNK, INCREASED DOSE
     Route: 048
     Dates: start: 2020
  3. DIASTAT [DIAZEPAM] [Concomitant]
     Indication: SEIZURE
     Dosage: 12.5 MILLIGRAM, PRN FOR SEIZURE MORE THAN 3 MINUTES AND SEIZURE CLUSTER LESS THAN 15 MINUTES
     Route: 054
  4. VALPROATE [Concomitant]
     Active Substance: VALPROIC ACID
     Indication: PRODUCT USED FOR UNKNOWN INDICATION
     Dosage: 1625 MILLIGRAM, QD (500MG/500MG/625MG)
     Route: 065
  5. NOVOLOG [Concomitant]
     Active Substance: INSULIN ASPART
     Indication: PRODUCT USED FOR UNKNOWN INDICATION
     Dosage: UNK (INSULIN PUMP)
     Route: 065
  6. DIASTAT [DIAZEPAM] [Concomitant]
     Indication: SEIZURE CLUSTER
  7. RUFINAMIDE [Concomitant]
     Active Substance: RUFINAMIDE
     Indication: PRODUCT USED FOR UNKNOWN INDICATION
     Dosage: 600 MILLIGRAM, BID
     Route: 065

REACTIONS (6)
  - Lethargy [Unknown]
  - Seizure [Recovered/Resolved]
  - Seizure [Recovered/Resolved]
  - Weight increased [Unknown]
  - Tremor [Unknown]
  - Seizure [Unknown]

NARRATIVE: CASE EVENT DATE: 2020
